FAERS Safety Report 4765051-6 (Version None)
Quarter: 2005Q3

REPORT INFORMATION
  Report Type: 
  Country: None (occurrence: None)
  Receive Date: 20050909
  Receipt Date: 20031218
  Transmission Date: 20060218
  Serious: Yes (Hospitalization)
  Sender: FDA-Public Use
  Company Number: DE-ABBOTT-04P-062-0246457-00

PATIENT
  Sex: Female
  Weight: 78 kg

DRUGS (19)
  1. HUMIRA [Suspect]
     Indication: RHEUMATOID ARTHRITIS
     Route: 058
     Dates: start: 20030925, end: 20031001
  2. HUMIRA [Suspect]
     Route: 058
     Dates: start: 20040601, end: 20041201
  3. ETANERCEPT [Suspect]
     Indication: DRUG USE FOR UNKNOWN INDICATION
     Dates: start: 20031001
  4. LEFLUNOMIDE [Suspect]
     Indication: DRUG USE FOR UNKNOWN INDICATION
  5. PREDNISOLONE [Suspect]
     Indication: RHEUMATOID ARTHRITIS
     Dates: start: 20030301
  6. PREDNISOLONE [Suspect]
     Dates: start: 20030901, end: 20030901
  7. PREDNISOLONE [Suspect]
     Dates: start: 20031208, end: 20031208
  8. METHOTREXATE [Suspect]
     Indication: RHEUMATOID ARTHRITIS
     Route: 065
  9. DICLOFENAC [Concomitant]
     Indication: DRUG USE FOR UNKNOWN INDICATION
     Route: 048
  10. SPIRONOLACTONE [Concomitant]
     Indication: DRUG USE FOR UNKNOWN INDICATION
     Route: 048
  11. RAMIPRIL [Concomitant]
     Indication: DRUG USE FOR UNKNOWN INDICATION
     Route: 048
  12. ALENDRONSACURE [Concomitant]
     Indication: DRUG USE FOR UNKNOWN INDICATION
     Route: 048
  13. OMEPRAZOLE [Concomitant]
     Indication: PROPHYLAXIS AGAINST GASTROINTESTINAL ULCER
     Route: 048
  14. LEKOVIT CA [Concomitant]
     Indication: OSTEOPOROSIS
     Route: 048
  15. L-THYROXIN [Concomitant]
     Indication: GOITRE
     Route: 048
  16. NEBIVOLOL HCL [Concomitant]
     Indication: HYPERTENSION
     Route: 048
  17. PREDNISOLONE [Concomitant]
     Route: 048
  18. HUMANINSULIN [Concomitant]
     Indication: DIABETES MELLITUS
     Route: 058
  19. LANTUS [Concomitant]
     Indication: DIABETES MELLITUS
     Route: 058

REACTIONS (5)
  - BREAST HAEMORRHAGE [None]
  - CHEST WALL ABSCESS [None]
  - DIARRHOEA [None]
  - TENDON RUPTURE [None]
  - TREMOR [None]
